FAERS Safety Report 7810088-3 (Version None)
Quarter: 2011Q4

REPORT INFORMATION
  Report Type: 
  Country: None (occurrence: None)
  Receive Date: 20111012
  Receipt Date: 20111011
  Transmission Date: 20120403
  Serious: Yes (Hospitalization, Other)
  Sender: FDA-Public Use
  Company Number: US-TEVA-301081USA

PATIENT
  Sex: Female

DRUGS (2)
  1. WARFARIN SODIUM [Suspect]
     Indication: MITRAL VALVE DISEASE
     Dosage: 2.5 MG OR 5 MG DOSE RANGES
     Route: 048
     Dates: start: 20020101
  2. AMIODARONE HCL [Concomitant]
     Indication: HEART RATE IRREGULAR
     Dosage: 200 MILLIGRAM;
     Route: 048

REACTIONS (12)
  - INTERNATIONAL NORMALISED RATIO INCREASED [None]
  - PAIN IN JAW [None]
  - CHEST DISCOMFORT [None]
  - CHEST PAIN [None]
  - DIZZINESS [None]
  - TRISMUS [None]
  - ASTHENIA [None]
  - PROTHROMBIN TIME PROLONGED [None]
  - FALL [None]
  - HEART RATE IRREGULAR [None]
  - LOSS OF CONSCIOUSNESS [None]
  - SYNCOPE [None]
